FAERS Safety Report 22595896 (Version 1)
Quarter: 2023Q2

REPORT INFORMATION
  Report Type: Spontaneous
  Country: US (occurrence: US)
  Receive Date: 20230613
  Receipt Date: 20230613
  Transmission Date: 20230722
  Serious: No
  Sender: FDA-Public Use
  Company Number: US-CARA THERAPEUTICS, INC.-2023-00087-US

PATIENT
  Sex: Female

DRUGS (3)
  1. KORSUVA [Suspect]
     Active Substance: DIFELIKEFALIN ACETATE
     Indication: Pruritus
     Dosage: UNKNOWN
     Dates: start: 202302, end: 202303
  2. KORSUVA [Suspect]
     Active Substance: DIFELIKEFALIN ACETATE
     Indication: Chronic kidney disease
  3. IRON [Concomitant]
     Active Substance: IRON
     Indication: Anaemia

REACTIONS (4)
  - Haemoglobin decreased [Unknown]
  - Dizziness [Unknown]
  - Somnolence [Unknown]
  - Fall [Unknown]

NARRATIVE: CASE EVENT DATE: 20230301
